FAERS Safety Report 24339984 (Version 1)
Quarter: 2024Q3

REPORT INFORMATION
  Report Type: Spontaneous
  Country: PL (occurrence: PL)
  Receive Date: 20240919
  Receipt Date: 20240919
  Transmission Date: 20241017
  Serious: Yes (Hospitalization)
  Sender: AMGEN
  Company Number: PL-AMGEN-POLSP2024184064

PATIENT
  Age: 71 Year
  Sex: Female

DRUGS (2)
  1. NPLATE [Suspect]
     Active Substance: ROMIPLOSTIM
     Indication: Product used for unknown indication
     Dosage: 95 MICROGRAM, QWK
     Route: 065
     Dates: start: 202101, end: 20220729
  2. NPLATE [Suspect]
     Active Substance: ROMIPLOSTIM
     Dosage: 125 MICROGRAM
     Route: 065
     Dates: start: 202101

REACTIONS (1)
  - Staphylococcal sepsis [Unknown]

NARRATIVE: CASE EVENT DATE: 20220601
